FAERS Safety Report 4437186-9 (Version None)
Quarter: 2004Q3

REPORT INFORMATION
  Report Type: 
  Country: None (occurrence: None)
  Receive Date: 20040726
  Receipt Date: 20040311
  Transmission Date: 20050211
  Serious: No
  Sender: FDA-Public Use
  Company Number: USA040360854

PATIENT
  Age: 70 Year
  Sex: Female

DRUGS (10)
  1. FORTEO [Suspect]
     Indication: OSTEOPOROSIS
     Dosage: 20 UG DAY
     Dates: start: 20040303, end: 20040310
  2. PREDNISONE [Concomitant]
  3. CALCIUM [Concomitant]
  4. LIPITOR [Concomitant]
  5. ZITHROMAX [Concomitant]
  6. LASIX [Concomitant]
  7. PROVENTIL [Concomitant]
  8. ACETAMINOPHEN AND HYDROCODONE BITARTRATE [Concomitant]
  9. POTASSIUM [Concomitant]
  10. ZAROXOLYN [Concomitant]

REACTIONS (5)
  - DIARRHOEA [None]
  - INJECTION SITE ERYTHEMA [None]
  - INJECTION SITE URTICARIA [None]
  - NAUSEA [None]
  - VOMITING [None]
